FAERS Safety Report 5570725-3 (Version None)
Quarter: 2007Q4

REPORT INFORMATION
  Report Type: 
  Country: None (occurrence: None)
  Receive Date: 20071221
  Receipt Date: 20071219
  Transmission Date: 20080405
  Serious: Yes (Death, Hospitalization, Other)
  Sender: FDA-Public Use
  Company Number: CA-BRISTOL-MYERS SQUIBB COMPANY-14016265

PATIENT
  Age: 87 Year
  Sex: Female
  Weight: 52 kg

DRUGS (5)
  1. COUMADIN [Suspect]
     Indication: ATRIAL FIBRILLATION
     Dosage: 1 DOSAGE FORM = 4MG AND 4.5MG ALTERNATING.THERAPY INTERRUPTED ON 17-SEP-2007
     Route: 048
  2. SEROQUEL [Suspect]
     Indication: AGITATION
     Dosage: DOSE REDUCED TO 25MG/DAY, LATER HOLD ON 19SEP07. TAKEN IN MORNING, LATER MOVED AT NIGHT.
     Route: 048
     Dates: start: 20070901
  3. AVAPRO [Concomitant]
     Route: 048
  4. ADALAT CC [Concomitant]
     Route: 048
  5. TENORMIN [Concomitant]
     Route: 048

REACTIONS (8)
  - ACTIVATED PARTIAL THROMBOPLASTIN TIME PROLONGED [None]
  - ATRIAL FIBRILLATION [None]
  - HYPERTENSION [None]
  - INTERNATIONAL NORMALISED RATIO INCREASED [None]
  - INTESTINAL FUNCTIONAL DISORDER [None]
  - STARVATION [None]
  - SYNCOPE [None]
  - VASCULAR DEMENTIA [None]
